FAERS Safety Report 23514247 (Version 2)
Quarter: 2024Q2

REPORT INFORMATION
  Report Type: Report from Study
  Country: US (occurrence: US)
  Receive Date: 20240212
  Receipt Date: 20240406
  Transmission Date: 20240715
  Serious: Yes (Other)
  Sender: FDA-Public Use
  Company Number: US-ABBVIE-5515774

PATIENT
  Sex: Female

DRUGS (2)
  1. RINVOQ [Suspect]
     Active Substance: UPADACITINIB
     Indication: Rheumatoid arthritis
     Route: 048
     Dates: start: 20230811
  2. RINVOQ [Suspect]
     Active Substance: UPADACITINIB
     Indication: Rheumatoid arthritis
     Dosage: LAST ADMIN DATE: AUG 2023
     Route: 048
     Dates: start: 20230809

REACTIONS (6)
  - Limb reconstructive surgery [Recovering/Resolving]
  - Acne [Recovered/Resolved]
  - Surgical failure [Unknown]
  - Weight increased [Unknown]
  - Thyroid disorder [Unknown]
  - Food craving [Unknown]

NARRATIVE: CASE EVENT DATE: 20230101
